FAERS Safety Report 7055885-X (Version None)
Quarter: 2010Q4

REPORT INFORMATION
  Report Type: 
  Country: None (occurrence: None)
  Receive Date: 20101021
  Receipt Date: 20100917
  Transmission Date: 20110411
  Serious: Yes (Other)
  Sender: FDA-Public Use
  Company Number: IE-US-EMD SERONO, INC.-7005997

PATIENT
  Sex: Female

DRUGS (9)
  1. REBIF [Suspect]
     Indication: RELAPSING-REMITTING MULTIPLE SCLEROSIS
     Dates: start: 20100518, end: 20100101
  2. REBIF [Suspect]
     Dates: start: 20100101, end: 20100616
  3. VALPROATE SODIUM [Concomitant]
  4. PHENYTOIN [Concomitant]
     Dosage: 350MG+ 3 MLS
  5. PREGABALIN [Concomitant]
  6. OXCARBAZEPINE [Concomitant]
  7. CLOBAZAM [Concomitant]
  8. FOLIC ACID [Concomitant]
  9. CALCICHEW D3 FORTE [Concomitant]

REACTIONS (7)
  - ALANINE AMINOTRANSFERASE INCREASED [None]
  - BALANCE DISORDER [None]
  - BLOOD ALKALINE PHOSPHATASE INCREASED [None]
  - DRUG DOSE OMISSION [None]
  - GAMMA-GLUTAMYLTRANSFERASE INCREASED [None]
  - LIVER FUNCTION TEST ABNORMAL [None]
  - SOMNOLENCE [None]
